FAERS Safety Report 21557371 (Version 2)
Quarter: 2022Q4

REPORT INFORMATION
  Report Type: Spontaneous
  Country: US (occurrence: US)
  Receive Date: 20221105
  Receipt Date: 20221115
  Transmission Date: 20230113
  Serious: Yes (Life-Threatening, Hospitalization, Other)
  Sender: FDA-Public Use
  Company Number: US-MLMSERVICE-20221018-3868260-1

PATIENT
  Age: 17 Year
  Sex: Female

DRUGS (1)
  1. IBUPROFEN [Suspect]
     Active Substance: IBUPROFEN
     Indication: Product used for unknown indication
     Dosage: 40 GRAM
     Route: 048

REACTIONS (11)
  - Metabolic acidosis [Recovering/Resolving]
  - Shock [Recovering/Resolving]
  - Gastrointestinal haemorrhage [Recovering/Resolving]
  - Nausea [Recovering/Resolving]
  - Blood lactic acid increased [Recovering/Resolving]
  - Intentional overdose [Recovering/Resolving]
  - Vomiting [Recovering/Resolving]
  - Acute kidney injury [Recovering/Resolving]
  - Sinus tachycardia [Recovering/Resolving]
  - Depressed level of consciousness [Recovering/Resolving]
  - Toxicity to various agents [Recovering/Resolving]
